FAERS Safety Report 5043545-6 (Version None)
Quarter: 2006Q2

REPORT INFORMATION
  Report Type: 
  Country: None (occurrence: None)
  Receive Date: 20060601
  Receipt Date: 20060222
  Transmission Date: 20061013
  Serious: No
  Sender: FDA-Public Use
  Company Number: 2006PV009120

PATIENT
  Age: 43 Year
  Sex: Female
  Weight: 183.2532 kg

DRUGS (11)
  1. BYETTA [Suspect]
     Indication: DIABETES MELLITUS NON-INSULIN-DEPENDENT
     Dosage: 5 MCG;BID;SC
     Route: 058
     Dates: start: 20060220
  2. LANTUS [Concomitant]
  3. GLUCOPHAGE [Concomitant]
  4. ACTOS [Concomitant]
  5. NEXIUM [Concomitant]
  6. ZELNORM [Concomitant]
  7. NOVOLOG [Concomitant]
  8. LASIX [Concomitant]
  9. LOTREL [Concomitant]
  10. ERYTHROMYCIN [Concomitant]
  11. CELEBREX [Concomitant]

REACTIONS (14)
  - BLOOD GLUCOSE INCREASED [None]
  - CONDITION AGGRAVATED [None]
  - COUGH [None]
  - DRUG INEFFECTIVE [None]
  - DYSPNOEA [None]
  - GLOSSODYNIA [None]
  - HEADACHE [None]
  - NAUSEA [None]
  - OEDEMA [None]
  - POLLAKIURIA [None]
  - PYREXIA [None]
  - RESPIRATORY TRACT CONGESTION [None]
  - THIRST [None]
  - WHEEZING [None]
